FAERS Safety Report 4853975-0 (Version None)
Quarter: 2005Q4

REPORT INFORMATION
  Report Type: 
  Country: None (occurrence: None)
  Receive Date: 20051214
  Receipt Date: 20051207
  Transmission Date: 20060501
  Serious: Yes (Death, Hospitalization)
  Sender: FDA-Public Use
  Company Number: US-MERCK-0512USA01109

PATIENT
  Age: 49 Year
  Sex: Male
  Weight: 85 kg

DRUGS (2)
  1. PROZAC [Concomitant]
     Route: 065
     Dates: start: 19960101
  2. VIOXX [Suspect]
     Indication: KNEE OPERATION
     Route: 048
     Dates: start: 19990101, end: 20021111

REACTIONS (1)
  - MYOCARDIAL INFARCTION [None]
